FAERS Safety Report 20411164 (Version 1)
Quarter: 2022Q1

REPORT INFORMATION
  Report Type: Report from Study
  Country: IT (occurrence: IT)
  Receive Date: 20220201
  Receipt Date: 20220201
  Transmission Date: 20220423
  Serious: Yes (Hospitalization)
  Sender: FDA-Public Use
  Company Number: None

PATIENT
  Age: 90 Year
  Sex: Male

DRUGS (8)
  1. CLOPIDOGREL [Interacting]
     Active Substance: CLOPIDOGREL BISULFATE
     Dosage: CLOPIDOGREL ACTAVIS,UNIT DOSE:75MG,ADDITIONAL INFORMATION:INTERACTING DRUGS
     Route: 048
  2. ASPIRIN [Interacting]
     Active Substance: ASPIRIN
     Dosage: CARDIOASPIRIN 100 MG GASTRORESISTANT TABLETS,UNIT DOSE:100MG,ADDITIONAL INFORMATION:INTERACTING DRUG
     Route: 048
  3. ATARAX [Concomitant]
     Active Substance: HYDROXYZINE HYDROCHLORIDE
     Dosage: ATARAX 25 MG TABLETS COATED WITH FILM
  4. PANTOPRAZOLE SODIUM [Concomitant]
     Active Substance: PANTOPRAZOLE SODIUM
     Dosage: PANTORC 20 MG FOOD-RESISTANT TABLETS
  5. IVABRADINE [Concomitant]
     Active Substance: IVABRADINE
  6. FUROSEMIDE [Concomitant]
     Active Substance: FUROSEMIDE
     Dosage: FUROSEMIDE DOC GENERICI 25 MG TABLETS
  7. ZOFENOPRIL [Concomitant]
     Active Substance: ZOFENOPRIL
     Dosage: ZOFENOPRIL MYLAN GENERICS 30 MG TABLETS COATED WITH FILM
  8. BISOPROLOL [Concomitant]
     Active Substance: BISOPROLOL
     Dosage: BISOPROLOL TEVA 2.5 MG TABLETS

REACTIONS (2)
  - Subarachnoid haemorrhage [Recovering/Resolving]
  - Drug interaction [Unknown]

NARRATIVE: CASE EVENT DATE: 20210414
